FAERS Safety Report 6217496-5 (Version None)
Quarter: 2009Q2

REPORT INFORMATION
  Report Type: 
  Country: None (occurrence: None)
  Receive Date: 20090608
  Receipt Date: 20081204
  Transmission Date: 20091009
  Serious: No
  Sender: FDA-Public Use
  Company Number: A0759308A

PATIENT
  Age: 49 Year
  Sex: Male

DRUGS (4)
  1. WELLBUTRIN [Suspect]
     Indication: DEPRESSION
     Dosage: 1TAB PER DAY
     Route: 048
     Dates: start: 20070401
  2. LIPITOR [Concomitant]
  3. LAMICTAL [Concomitant]
  4. SINGULAIR [Concomitant]

REACTIONS (3)
  - AMNESIA [None]
  - ENERGY INCREASED [None]
  - WEIGHT DECREASED [None]
